FAERS Safety Report 5767001-2 (Version None)
Quarter: 2008Q2

REPORT INFORMATION
  Report Type: 
  Country: None (occurrence: None)
  Receive Date: 20080609
  Receipt Date: 20080526
  Transmission Date: 20081010
  Serious: Yes (Life-Threatening, Hospitalization)
  Sender: FDA-Public Use
  Company Number: 2007BI025450

PATIENT
  Age: 48 Year
  Sex: Male

DRUGS (1)
  1. AVONEX [Suspect]
     Indication: RELAPSING-REMITTING MULTIPLE SCLEROSIS
     Dosage: 30 UG; QW; IM
     Route: 030

REACTIONS (16)
  - AORTIC DISSECTION [None]
  - ASTHENIA [None]
  - ATRIAL FLUTTER [None]
  - BLOOD CREATININE DECREASED [None]
  - C-REACTIVE PROTEIN INCREASED [None]
  - CARDIAC FUNCTION DISTURBANCE POSTOPERATIVE [None]
  - CHEST PAIN [None]
  - CONDITION AGGRAVATED [None]
  - FATIGUE [None]
  - HAEMATOCRIT DECREASED [None]
  - HAEMOGLOBIN DECREASED [None]
  - IMPAIRED WORK ABILITY [None]
  - MEAN CELL HAEMOGLOBIN CONCENTRATION DECREASED [None]
  - PROCEDURAL SITE REACTION [None]
  - PYREXIA [None]
  - RED BLOOD CELL COUNT DECREASED [None]
